FAERS Safety Report 7142037-8 (Version None)
Quarter: 2010Q4

REPORT INFORMATION
  Report Type: 
  Country: None (occurrence: None)
  Receive Date: 20101207
  Receipt Date: 20101201
  Transmission Date: 20110411
  Serious: Yes (Hospitalization)
  Sender: FDA-Public Use
  Company Number: B0645028A

PATIENT
  Sex: Male
  Weight: 22 kg

DRUGS (21)
  1. ARRANON [Suspect]
     Dosage: 650MGM2 PER DAY
     Route: 042
     Dates: start: 20091014, end: 20091114
  2. DECADRON [Suspect]
     Indication: NEOPLASM MALIGNANT
     Route: 042
     Dates: start: 20091021, end: 20091121
  3. CYLOCIDE [Suspect]
     Indication: NEOPLASM MALIGNANT
     Route: 042
     Dates: start: 20090904, end: 20091121
  4. VEPESID [Suspect]
     Indication: NEOPLASM MALIGNANT
     Route: 042
     Dates: start: 20091023, end: 20091121
  5. LEUNASE [Suspect]
     Indication: NEOPLASM MALIGNANT
     Dosage: 21000IU PER DAY
     Route: 042
     Dates: start: 20091026, end: 20091031
  6. FUNGUARD [Suspect]
     Indication: PROPHYLAXIS
     Route: 042
     Dates: start: 20091027, end: 20091203
  7. FIRSTCIN [Suspect]
     Indication: PROPHYLAXIS
     Route: 042
     Dates: start: 20091014, end: 20091203
  8. LEUKERIN [Concomitant]
     Indication: NEOPLASM MALIGNANT
     Route: 048
     Dates: start: 20090904, end: 20091001
  9. ENDOXAN [Concomitant]
     Indication: NEOPLASM MALIGNANT
     Dates: start: 20090904, end: 20090904
  10. ENDOXAN [Concomitant]
     Dates: start: 20090918, end: 20090918
  11. METHOTREXATE [Concomitant]
     Indication: NEOPLASM MALIGNANT
     Route: 042
     Dates: start: 20090904, end: 20090904
  12. METHOTREXATE [Concomitant]
     Dates: start: 20090918, end: 20090918
  13. METHOTREXATE [Concomitant]
     Dates: start: 20090925, end: 20090928
  14. SAXIZON [Concomitant]
     Indication: NEOPLASM MALIGNANT
     Dates: start: 20090904, end: 20090904
  15. SAXIZON [Concomitant]
     Dates: start: 20090918, end: 20090918
  16. BAKTAR [Concomitant]
     Indication: PROPHYLAXIS
     Route: 048
     Dates: start: 20090320, end: 20100111
  17. JUVELA [Concomitant]
     Indication: PROPHYLAXIS
     Route: 048
     Dates: start: 20090320, end: 20100111
  18. NEUQUINON [Concomitant]
     Indication: PROPHYLAXIS
     Route: 048
     Dates: start: 20090320, end: 20100111
  19. KANAMYCIN [Concomitant]
     Indication: PROPHYLAXIS
     Route: 048
     Dates: start: 20090320, end: 20100111
  20. POLYMYXIN-B-SULFATE [Concomitant]
     Indication: PROPHYLAXIS
     Route: 048
     Dates: start: 20090320, end: 20100111
  21. AMPHOTERICIN B [Concomitant]
     Indication: PROPHYLAXIS
     Route: 048
     Dates: start: 20090320, end: 20100111

REACTIONS (1)
  - PANCYTOPENIA [None]
